FAERS Safety Report 18919016 (Version 2)
Quarter: 2021Q1

REPORT INFORMATION
  Report Type: Other
  Country: US (occurrence: US)
  Receive Date: 20210220
  Receipt Date: 20210304
  Transmission Date: 20210420
  Serious: Yes (Other)
  Sender: FDA-Public Use
  Company Number: US-ROCHE-2770014

PATIENT
  Sex: Female

DRUGS (1)
  1. XELODA [Suspect]
     Active Substance: CAPECITABINE
     Indication: BREAST CANCER FEMALE
     Dosage: TAKE 4 TABLETS BY MOUTH TWICE A DAY ON DAYS 1?14 EVERY 21 DAYS
     Route: 048

REACTIONS (3)
  - Neoplasm progression [Unknown]
  - Ill-defined disorder [Unknown]
  - COVID-19 [Unknown]
